FAERS Safety Report 6674744-5 (Version None)
Quarter: 2010Q2

REPORT INFORMATION
  Report Type: 
  Country: None (occurrence: None)
  Receive Date: 20100409
  Receipt Date: 20100406
  Transmission Date: 20101027
  Serious: Yes (Other)
  Sender: FDA-Public Use
  Company Number: US-B.I. PHARMACEUTICALS,INC./RIDGEFIELD-2010-BP-02952BP

PATIENT
  Sex: Female

DRUGS (8)
  1. SPIRIVA [Suspect]
     Indication: EMPHYSEMA
     Dosage: 18 MCG
     Route: 055
     Dates: start: 20100226
  2. SPIRIVA [Suspect]
     Indication: CHRONIC OBSTRUCTIVE PULMONARY DISEASE
  3. FLOVENT [Suspect]
     Indication: ASTHMA
     Route: 055
     Dates: start: 20100226, end: 20100315
  4. FLOVENT [Suspect]
     Indication: EMPHYSEMA
  5. FLOVENT [Suspect]
     Indication: CHRONIC OBSTRUCTIVE PULMONARY DISEASE
  6. ALBUTEROL [Concomitant]
     Indication: ASTHMA
     Route: 055
     Dates: start: 20100226
  7. ALBUTEROL [Concomitant]
     Indication: EMPHYSEMA
  8. VICODIN [Concomitant]
     Indication: PAIN
     Route: 048

REACTIONS (7)
  - ABDOMINAL DISTENSION [None]
  - BACK PAIN [None]
  - BREAST CANCER [None]
  - DYSPNOEA [None]
  - JOINT SWELLING [None]
  - RASH [None]
  - RASH ERYTHEMATOUS [None]
